FAERS Safety Report 5908129-3 (Version None)
Quarter: 2008Q4

REPORT INFORMATION
  Report Type: 
  Country: None (occurrence: None)
  Receive Date: 20081003
  Receipt Date: 20080925
  Transmission Date: 20090506
  Serious: Yes (Other)
  Sender: FDA-Public Use
  Company Number: US-PFIZER INC-2008081140

PATIENT
  Age: 68 Year
  Sex: Male

DRUGS (4)
  1. GLIPIZIDE [Suspect]
     Indication: DIABETES MELLITUS
  2. METOPROLOL TARTRATE [Concomitant]
     Indication: CARDIAC DISORDER
  3. VYTORIN [Concomitant]
     Indication: BLOOD CHOLESTEROL
  4. PLAVIX [Concomitant]
     Dates: start: 20080701

REACTIONS (1)
  - BLOOD GLUCOSE INCREASED [None]
